FAERS Safety Report 10266229 (Version 1)
Quarter: 2014Q2

REPORT INFORMATION
  Report Type: Spontaneous
  Country: US (occurrence: US)
  Receive Date: 20140627
  Receipt Date: 20140627
  Transmission Date: 20141212
  Serious: No
  Sender: FDA-Public Use
  Company Number: US-PFIZER INC-2014177549

PATIENT
  Sex: Female

DRUGS (3)
  1. CELEBREX [Suspect]
     Dosage: DAILY
     Dates: start: 20140624
  2. IBUPROFEN [Suspect]
     Indication: INFLAMMATION
     Dosage: 400 MG, 2X/DAY
  3. IBUPROFEN [Suspect]
     Indication: PAIN

REACTIONS (1)
  - Drug ineffective [Unknown]
